FAERS Safety Report 4575754-4 (Version None)
Quarter: 2005Q1

REPORT INFORMATION
  Report Type: 
  Country: None (occurrence: None)
  Receive Date: 20050209
  Receipt Date: 20050128
  Transmission Date: 20050727
  Serious: Yes (Other)
  Sender: FDA-Public Use
  Company Number: IT-GLAXOSMITHKLINE-B0370097A

PATIENT
  Age: 50 Year
  Sex: Female

DRUGS (1)
  1. NIQUITIN CQ 21MG [Suspect]
     Indication: SMOKING CESSATION THERAPY
     Dosage: 21MG PER DAY
     Route: 062
     Dates: start: 20050101, end: 20050101

REACTIONS (1)
  - VAGINAL HAEMORRHAGE [None]
